FAERS Safety Report 15082820 (Version 1)
Quarter: 2018Q2

REPORT INFORMATION
  Report Type: Spontaneous
  Country: US (occurrence: US)
  Receive Date: 20180628
  Receipt Date: 20180628
  Transmission Date: 20180711
  Serious: Yes (Hospitalization)
  Sender: FDA-Public Use
  Company Number: US-PERRIGO-18US006458

PATIENT
  Sex: Female

DRUGS (2)
  1. ASPIRIN                            /00002701/ [Suspect]
     Active Substance: ASPIRIN
     Indication: FOETAL EXPOSURE DURING PREGNANCY
     Dosage: UNKNOWN, UNKNOWN
     Route: 064
  2. ACETAMINOPHEN. [Suspect]
     Active Substance: ACETAMINOPHEN
     Indication: FOETAL EXPOSURE DURING PREGNANCY
     Dosage: UNKNOWN, UNKNOWN
     Route: 064

REACTIONS (8)
  - Metabolic acidosis [Recovered/Resolved]
  - Activated partial thromboplastin time prolonged [Recovered/Resolved]
  - Foetal exposure during pregnancy [Recovered/Resolved]
  - Prothrombin time prolonged [Recovered/Resolved]
  - Drug level increased [Recovered/Resolved]
  - Premature baby [Not Recovered/Not Resolved]
  - Drug-induced liver injury [Recovered/Resolved]
  - International normalised ratio increased [Recovered/Resolved]
